FAERS Safety Report 6590437-7 (Version None)
Quarter: 2010Q1

REPORT INFORMATION
  Report Type: 
  Country: None (occurrence: None)
  Receive Date: 20100219
  Receipt Date: 20100106
  Transmission Date: 20100710
  Serious: Yes (Death, Hospitalization)
  Sender: FDA-Public Use
  Company Number: JP-SANOFI-AVENTIS-2010SA000989

PATIENT
  Age: 73 Year
  Sex: Male
  Weight: 62 kg

DRUGS (5)
  1. PLAVIX [Suspect]
     Indication: ISCHAEMIC CEREBRAL INFARCTION
     Route: 048
     Dates: start: 20081209, end: 20090627
  2. AMLODIPINE [Concomitant]
     Route: 048
     Dates: start: 20090205
  3. EUGLUCON [Concomitant]
     Route: 048
     Dates: end: 20090618
  4. URSO 250 [Concomitant]
     Route: 048
     Dates: end: 20090627
  5. HARNAL [Concomitant]
     Route: 048
     Dates: end: 20090627

REACTIONS (2)
  - STRESS CARDIOMYOPATHY [None]
  - WHITE BLOOD CELL COUNT INCREASED [None]
